FAERS Safety Report 7556484-3 (Version None)
Quarter: 2011Q2

REPORT INFORMATION
  Report Type: 
  Country: None (occurrence: None)
  Receive Date: 20110620
  Receipt Date: 20110611
  Transmission Date: 20111010
  Serious: Yes (Other)
  Sender: FDA-Public Use
  Company Number: IT-JNJFOC-20110606178

PATIENT
  Sex: Male

DRUGS (4)
  1. VERAPAMIL HCL [Concomitant]
     Indication: ILL-DEFINED DISORDER
     Route: 065
  2. LANOXIN [Concomitant]
     Indication: ILL-DEFINED DISORDER
     Route: 065
  3. XANAX [Concomitant]
     Indication: ILL-DEFINED DISORDER
     Route: 048
  4. ECONAZOLE NITRATE [Suspect]
     Indication: PITYRIASIS
     Route: 065
     Dates: start: 20110520, end: 20110601

REACTIONS (1)
  - INTERNATIONAL NORMALISED RATIO INCREASED [None]
